FAERS Safety Report 6121692-5 (Version None)
Quarter: 2009Q1

REPORT INFORMATION
  Report Type: 
  Country: None (occurrence: None)
  Receive Date: 20090313
  Receipt Date: 20090303
  Transmission Date: 20090719
  Serious: Yes (Other)
  Sender: FDA-Public Use
  Company Number: MOZO-1000038

PATIENT
  Age: 72 Year
  Sex: Female
  Weight: 55.3 kg

DRUGS (13)
  1. MOZOBIL [Suspect]
     Indication: HAEMATOPOIETIC STEM CELL MOBILISATION
     Dosage: 0.7 ML, QD, SUBCUTANEOUS
     Route: 058
     Dates: start: 20080121, end: 20080122
  2. MOZOBIL [Suspect]
     Indication: NON-HODGKIN'S LYMPHOMA
     Dosage: 0.7 ML, QD, SUBCUTANEOUS
     Route: 058
     Dates: start: 20080121, end: 20080122
  3. NEUPOGEN [Concomitant]
  4. CARMUSTINE [Concomitant]
  5. ETOPOSIDE [Concomitant]
  6. CYTARABINE [Concomitant]
  7. MELPHALAN (MELPHALAN) [Concomitant]
  8. RITUXIMAB (RITUXIMAB) [Concomitant]
  9. LEVAQUIN [Concomitant]
  10. ANZEMET [Concomitant]
  11. PHENERGAN (PROMETHAZINE) [Concomitant]
  12. QUININE (QUININE) [Concomitant]
  13. ELAVIL [Concomitant]

REACTIONS (11)
  - ANAEMIA MACROCYTIC [None]
  - BONE PAIN [None]
  - CONTUSION [None]
  - ENGRAFT FAILURE [None]
  - FATIGUE [None]
  - HAEMORRHAGE [None]
  - MEGAKARYOCYTES DECREASED [None]
  - SCAR [None]
  - SEROMA [None]
  - STEM CELL TRANSPLANT [None]
  - THROMBOCYTOPENIA [None]
